FAERS Safety Report 6383581-0 (Version None)
Quarter: 2009Q4

REPORT INFORMATION
  Report Type: 
  Country: None (occurrence: None)
  Receive Date: 20091001
  Receipt Date: 20090923
  Transmission Date: 20100525
  Serious: Yes (Hospitalization)
  Sender: FDA-Public Use
  Company Number: US-ELI_LILLY_AND_COMPANY-US200909005894

PATIENT
  Sex: Female
  Weight: 63.039 kg

DRUGS (7)
  1. BYETTA [Suspect]
     Indication: TYPE 2 DIABETES MELLITUS
     Dosage: 5 UG, 2/D
     Route: 058
     Dates: start: 20070301
  2. ATENOLOL [Concomitant]
     Indication: BLOOD PRESSURE INCREASED
     Dosage: 25 MG, DAILY (1/D)
  3. BENICAR [Concomitant]
     Indication: BLOOD PRESSURE INCREASED
     Dosage: 20 MG, DAILY (1/D)
  4. CATAPRES /USA/ [Concomitant]
     Indication: BLOOD PRESSURE INCREASED
     Dosage: 0.1 MG, UNK
  5. CLIMARA [Concomitant]
     Route: 061
  6. NEXIUM [Concomitant]
     Indication: GASTROOESOPHAGEAL REFLUX DISEASE
     Dosage: 40 MG, DAILY (1/D)
  7. REGLAN [Concomitant]
     Dosage: 5 MG, DAILY (1/D)

REACTIONS (3)
  - ABDOMINAL HERNIA [None]
  - BLOOD GLUCOSE INCREASED [None]
  - OFF LABEL USE [None]
